FAERS Safety Report 4976777-3 (Version None)
Quarter: 2006Q2

REPORT INFORMATION
  Report Type: 
  Country: None (occurrence: None)
  Receive Date: 20060419
  Receipt Date: 20060406
  Transmission Date: 20061013
  Serious: Yes (Hospitalization)
  Sender: FDA-Public Use
  Company Number: AU-GLAXOSMITHKLINE-B0420293A

PATIENT
  Age: 64 Year
  Sex: Female

DRUGS (2)
  1. VALTREX [Suspect]
     Dates: start: 20050101
  2. ZOVIRAX [Suspect]
     Dates: start: 19890101

REACTIONS (8)
  - CONSTIPATION [None]
  - DRY MOUTH [None]
  - ENTERITIS [None]
  - HEADACHE [None]
  - HEART RATE IRREGULAR [None]
  - NIGHTMARE [None]
  - PRODUCTIVE COUGH [None]
  - PYREXIA [None]
